FAERS Safety Report 7227696-3 (Version None)
Quarter: 2011Q1

REPORT INFORMATION
  Report Type: 
  Country: None (occurrence: None)
  Receive Date: 20110114
  Receipt Date: 20110110
  Transmission Date: 20110831
  Serious: No
  Sender: FDA-Public Use
  Company Number: US-PFIZER INC-2011006806

PATIENT
  Age: 61 Year
  Sex: Female
  Weight: 77.098 kg

DRUGS (2)
  1. ADVIL CONGESTION RELIEF [Suspect]
     Indication: SINUS HEADACHE
     Dosage: 1 DF, 1X/DAY
     Route: 048
     Dates: start: 20110108
  2. ADVIL CONGESTION RELIEF [Suspect]
     Indication: NASAL CONGESTION

REACTIONS (1)
  - DRUG INEFFECTIVE [None]
